FAERS Safety Report 5830904-4 (Version None)
Quarter: 2008Q3

REPORT INFORMATION
  Report Type: 
  Country: None (occurrence: None)
  Receive Date: 20080801
  Receipt Date: 20080428
  Transmission Date: 20090109
  Serious: No
  Sender: FDA-Public Use
  Company Number: US-BRISTOL-MYERS SQUIBB COMPANY-14056931

PATIENT
  Age: 62 Year
  Sex: Female
  Weight: 77 kg

DRUGS (7)
  1. COUMADIN [Suspect]
     Indication: ATRIAL FIBRILLATION
     Dosage: 2.5MG DAILY ALTERNATING WITH 5 MG DAILY.
     Route: 048
     Dates: start: 20010413
  2. CHANTIX [Suspect]
  3. PRILOSEC [Concomitant]
  4. ZETIA [Concomitant]
  5. LEVOTHROID [Concomitant]
  6. DIGOXIN [Concomitant]
  7. ACTONEL [Concomitant]

REACTIONS (5)
  - ANGER [None]
  - DEPRESSED MOOD [None]
  - DEPRESSION [None]
  - NIGHTMARE [None]
  - THERAPY REGIMEN CHANGED [None]
